FAERS Safety Report 14499237 (Version 1)
Quarter: 2018Q1

REPORT INFORMATION
  Report Type: Spontaneous
  Country: US (occurrence: US)
  Receive Date: 20180207
  Receipt Date: 20180207
  Transmission Date: 20180509
  Serious: No
  Sender: FDA-Public Use
  Company Number: US-JAZZ-2017-US-001599

PATIENT
  Sex: Female
  Weight: 81.63 kg

DRUGS (6)
  1. PRIALT [Suspect]
     Active Substance: ZICONOTIDE ACETATE
     Dosage: 0.15 ?G, QH
     Route: 037
     Dates: start: 20170502
  2. PRIALT [Suspect]
     Active Substance: ZICONOTIDE ACETATE
     Dosage: 0.103?G, QH
     Route: 037
     Dates: start: 20161010
  3. PRIALT [Suspect]
     Active Substance: ZICONOTIDE ACETATE
     Indication: PRODUCT USED FOR UNKNOWN INDICATION
     Dosage: 0.137?G, QH
     Route: 037
     Dates: start: 20151230
  4. PRIALT [Suspect]
     Active Substance: ZICONOTIDE ACETATE
     Dosage: 0.103?G, QH
     Route: 037
     Dates: start: 20160919
  5. PRIALT [Suspect]
     Active Substance: ZICONOTIDE ACETATE
     Dosage: 0.137?G, QH
     Route: 037
     Dates: start: 20160304
  6. PRIALT [Suspect]
     Active Substance: ZICONOTIDE ACETATE
     Dosage: 0.137 ?G, QH
     Route: 037
     Dates: start: 20170502, end: 20170502

REACTIONS (3)
  - Road traffic accident [Unknown]
  - Cerebrospinal fluid leakage [Recovered/Resolved]
  - Device issue [Recovered/Resolved]
